FAERS Safety Report 25462616 (Version 1)
Quarter: 2025Q2

REPORT INFORMATION
  Report Type: Spontaneous
  Country: US (occurrence: None)
  Receive Date: 20250611
  Receipt Date: 20250611
  Transmission Date: 20250717
  Serious: Yes (unspecified)
  Sender: FDA-CTU
  Company Number: None

PATIENT
  Age: 20 Year
  Sex: Female
  Weight: 75.3 kg

DRUGS (1)
  1. MOUNJARO [Suspect]
     Active Substance: TIRZEPATIDE

REACTIONS (5)
  - Vomiting [None]
  - Dizziness [None]
  - Nausea [None]
  - Gastritis [None]
  - Ovarian cyst [None]

NARRATIVE: CASE EVENT DATE: 20250610
